FAERS Safety Report 6850303-6 (Version None)
Quarter: 2010Q3

REPORT INFORMATION
  Report Type: 
  Country: None (occurrence: None)
  Receive Date: 20100716
  Receipt Date: 20071011
  Transmission Date: 20110219
  Serious: No
  Sender: FDA-Public Use
  Company Number: US-PFIZER INC-2007086720

PATIENT
  Sex: Female
  Weight: 79.5 kg

DRUGS (1)
  1. CHANTIX [Suspect]
     Indication: SMOKING CESSATION THERAPY
     Dosage: 1MG BID EVERY DAY TDD:2MG
     Dates: start: 20070901, end: 20071001

REACTIONS (3)
  - ANGER [None]
  - NIGHTMARE [None]
  - PALPITATIONS [None]
